FAERS Safety Report 10458283 (Version 1)
Quarter: 2014Q3

REPORT INFORMATION
  Report Type: Spontaneous
  Country: DE (occurrence: DE)
  Receive Date: 20140917
  Receipt Date: 20140917
  Transmission Date: 20150326
  Serious: Yes (Other)
  Sender: FDA-Public Use
  Company Number: DE-BIOGENIDEC-2014BI092457

PATIENT
  Age: 39 Year
  Sex: Female

DRUGS (4)
  1. EMSELEX [Concomitant]
     Active Substance: DARIFENACIN HYDROBROMIDE
     Indication: URINARY INCONTINENCE
     Dates: start: 20140804
  2. VALDOXAN [Concomitant]
     Active Substance: AGOMELATINE
     Indication: SLEEP DISORDER
     Dates: start: 20110101
  3. BACLOFEN. [Concomitant]
     Active Substance: BACLOFEN
     Indication: AUTOMATIC BLADDER
     Dates: start: 20120101
  4. TECFIDERA [Suspect]
     Active Substance: DIMETHYL FUMARATE
     Indication: MULTIPLE SCLEROSIS
     Route: 048
     Dates: start: 20140531

REACTIONS (1)
  - Breast neoplasm [Not Recovered/Not Resolved]

NARRATIVE: CASE EVENT DATE: 20140901
